FAERS Safety Report 8211320-7 (Version None)
Quarter: 2012Q1

REPORT INFORMATION
  Report Type: 
  Country: None (occurrence: None)
  Receive Date: 20120315
  Receipt Date: 20120312
  Transmission Date: 20120608
  Serious: No
  Sender: FDA-Public Use
  Company Number: US-PFIZER INC-2012065190

PATIENT
  Sex: Male
  Weight: 87.075 kg

DRUGS (3)
  1. DILTIAZEM [Concomitant]
     Indication: HYPERTENSION
     Dosage: 240 MG, 1X/DAY
  2. ARTHROTEC [Suspect]
     Indication: ARTHRITIS
     Dosage: [MISOPROSTOL 200MCG]/[DICLOFENAC 75MG], 2X/DAY
     Route: 048
     Dates: start: 20120308
  3. LOVASTATIN [Concomitant]
     Dosage: 40 MG, 1X/DAY

REACTIONS (1)
  - COUGH [None]
